FAERS Safety Report 11892927 (Version 1)
Quarter: 2016Q1

REPORT INFORMATION
  Report Type: Spontaneous
  Country: US (occurrence: US)
  Receive Date: 20160106
  Receipt Date: 20160106
  Transmission Date: 20160526
  Serious: No
  Sender: FDA-Public Use
  Company Number: US-ASTRAZENECA-2015SF30897

PATIENT
  Sex: Female

DRUGS (1)
  1. BRILINTA [Suspect]
     Active Substance: TICAGRELOR
     Indication: ACUTE CORONARY SYNDROME
     Route: 048

REACTIONS (7)
  - Chest pain [Unknown]
  - Activities of daily living impaired [Unknown]
  - Dizziness [Unknown]
  - Dyspnoea [Unknown]
  - Asthenia [Unknown]
  - Feeling abnormal [Unknown]
  - Swelling [Unknown]
